FAERS Safety Report 16292072 (Version 1)
Quarter: 2019Q2

REPORT INFORMATION
  Report Type: Report from Study
  Country: US (occurrence: US)
  Receive Date: 20190509
  Receipt Date: 20190509
  Transmission Date: 20190711
  Serious: Yes (Hospitalization)
  Sender: FDA-Public Use
  Company Number: US-ALKERMES INC.-ALK-2018-002886

PATIENT
  Age: 59 Year
  Sex: Male

DRUGS (7)
  1. VIVITROL [Suspect]
     Active Substance: NALTREXONE
     Indication: SUBSTANCE USE DISORDER
     Dosage: UNK MG, Q3WK
     Route: 030
     Dates: start: 20180222, end: 20180315
  2. VIVITROL [Suspect]
     Active Substance: NALTREXONE
     Dosage: UNK UNK, QD
     Route: 048
     Dates: start: 20180222
  3. VITAMIN D2 [Concomitant]
     Active Substance: ERGOCALCIFEROL
     Indication: PRODUCT USED FOR UNKNOWN INDICATION
     Dosage: 50000 IU, UNK
     Route: 048
  4. BLINDED BUPROPION [Suspect]
     Active Substance: BUPROPION
     Indication: SUBSTANCE USE DISORDER
     Dosage: UNK MG, Q3WK
     Route: 030
     Dates: start: 20180222, end: 20180315
  5. BLINDED PLACEBO [Suspect]
     Active Substance: INVESTIGATIONAL PRODUCT
     Indication: SUBSTANCE USE DISORDER
     Dosage: UNK MG, Q3WK
     Route: 030
     Dates: start: 20180222, end: 20180315
  6. BLINDED BUPROPION [Suspect]
     Active Substance: BUPROPION
     Dosage: UNK UNK, QD
     Route: 048
     Dates: start: 20180222
  7. BLINDED PLACEBO [Suspect]
     Active Substance: INVESTIGATIONAL PRODUCT
     Dosage: UNK UNK, QD
     Route: 048
     Dates: start: 20180222

REACTIONS (8)
  - Suicidal ideation [Recovered/Resolved]
  - Muscular weakness [Not Recovered/Not Resolved]
  - Product dose omission [Not Recovered/Not Resolved]
  - Cervical spinal stenosis [Not Recovered/Not Resolved]
  - Off label use [Unknown]
  - Atrioventricular block first degree [Not Recovered/Not Resolved]
  - Fall [Not Recovered/Not Resolved]
  - Neck pain [Not Recovered/Not Resolved]

NARRATIVE: CASE EVENT DATE: 20180212
